FAERS Safety Report 6038029-2 (Version None)
Quarter: 2009Q1

REPORT INFORMATION
  Report Type: 
  Country: None (occurrence: None)
  Receive Date: 20090114
  Receipt Date: 20090114
  Transmission Date: 20090719
  Serious: Yes (Disabling)
  Sender: FDA-Public Use
  Company Number: None

PATIENT
  Age: 71 Year
  Sex: Male
  Weight: 95.2554 kg

DRUGS (2)
  1. CASODEX [Suspect]
     Indication: PROSTATE CANCER
     Dosage: 90 TABLETS 1 A DAY 3 MONTHS
     Dates: start: 20080303, end: 20080603
  2. CASODEX [Suspect]
     Indication: PROSTATIC SPECIFIC ANTIGEN INCREASED
     Dosage: 90 TABLETS 1 A DAY 3 MONTHS
     Dates: start: 20080303, end: 20080603

REACTIONS (5)
  - JOINT SWELLING [None]
  - LOCAL SWELLING [None]
  - NECK PAIN [None]
  - OEDEMA PERIPHERAL [None]
  - PAIN IN EXTREMITY [None]
